FAERS Safety Report 5674690-X (Version None)
Quarter: 2008Q1

REPORT INFORMATION
  Report Type: 
  Country: None (occurrence: None)
  Receive Date: 20080320
  Receipt Date: 20080313
  Transmission Date: 20080703
  Serious: Yes (Other)
  Sender: FDA-Public Use
  Company Number: B0510785A

PATIENT
  Age: 60 Year
  Sex: Male
  Weight: 72 kg

DRUGS (3)
  1. AVODART [Suspect]
     Dosage: .5MG PER DAY
     Route: 048
     Dates: start: 20060101
  2. XATRAL [Concomitant]
     Dosage: 10MG PER DAY
     Route: 048
     Dates: start: 20050101
  3. ZESTRIL [Concomitant]
     Indication: HYPERTENSION
     Dosage: 30MG PER DAY
     Route: 048
     Dates: start: 19980101

REACTIONS (3)
  - DEMYELINATING POLYNEUROPATHY [None]
  - PERIPHERAL SENSORY NEUROPATHY [None]
  - POLYNEUROPATHY [None]
